FAERS Safety Report 10497593 (Version 3)
Quarter: 2014Q4

REPORT INFORMATION
  Report Type: Spontaneous
  Country: BR (occurrence: BR)
  Receive Date: 20141006
  Receipt Date: 20141021
  Transmission Date: 20150528
  Serious: Yes (Other)
  Sender: FDA-Public Use
  Company Number: BR-SANOFI-AVENTIS-2010SA001457

PATIENT
  Age: 45 Year
  Sex: Male
  Weight: 74 kg

DRUGS (10)
  1. AUTOPEN 24 [Suspect]
     Active Substance: DEVICE
  2. LANTUS [Suspect]
     Active Substance: INSULIN GLARGINE
     Indication: TYPE 1 DIABETES MELLITUS
     Route: 058
     Dates: start: 2010
  3. NOVOLIN [Concomitant]
     Active Substance: INSULIN HUMAN
     Indication: TYPE 1 DIABETES MELLITUS
     Route: 058
     Dates: start: 2010
  4. HUMALOG [Concomitant]
     Active Substance: INSULIN LISPRO
     Indication: TYPE 1 DIABETES MELLITUS
     Dosage: DOSE: ACCORDING TO DEXTRO 1 IU AT EVERY 50 MG DL
     Route: 058
  5. LANTUS [Suspect]
     Active Substance: INSULIN GLARGINE
     Indication: TYPE 1 DIABETES MELLITUS
     Dosage: DOSE INCREASED- FROM 34 IU TO38 IU IN THE MORNING
     Route: 058
     Dates: start: 201409
  6. LANTUS [Suspect]
     Active Substance: INSULIN GLARGINE
     Indication: TYPE 1 DIABETES MELLITUS
     Route: 058
     Dates: start: 20091230, end: 2010
  7. LEVOTHYROXINE SODIUM. [Concomitant]
     Active Substance: LEVOTHYROXINE SODIUM
     Indication: HYPOTHYROIDISM
     Route: 048
  8. LANTUS [Suspect]
     Active Substance: INSULIN GLARGINE
     Indication: TYPE 1 DIABETES MELLITUS
     Route: 058
  9. DEVICE NOS [Concomitant]
     Active Substance: DEVICE
  10. DEVICE NOS [Concomitant]
     Active Substance: DEVICE
     Indication: DEVICE THERAPY
     Dates: start: 20140924, end: 20140924

REACTIONS (11)
  - Respiration abnormal [Recovering/Resolving]
  - Somnolence [Recovering/Resolving]
  - Dyspnoea [Recovering/Resolving]
  - Tachycardia [Recovering/Resolving]
  - Hypoglycaemia [Recovering/Resolving]
  - Cold sweat [Recovering/Resolving]
  - Headache [Recovering/Resolving]
  - Blood glucose fluctuation [Not Recovered/Not Resolved]
  - Asthenia [Recovering/Resolving]
  - Injection site pain [Recovering/Resolving]
  - Hyperglycaemia [Recovering/Resolving]

NARRATIVE: CASE EVENT DATE: 20091230
